FAERS Safety Report 24574840 (Version 3)
Quarter: 2024Q4

REPORT INFORMATION
  Report Type: Spontaneous
  Country: UY (occurrence: UY)
  Receive Date: 20241104
  Receipt Date: 20241128
  Transmission Date: 20250115
  Serious: Yes (Other)
  Sender: ROCHE
  Company Number: UY-ROCHE-10000119691

PATIENT
  Age: 73 Year
  Sex: Male

DRUGS (6)
  1. BENDAMUSTINE [Suspect]
     Active Substance: BENDAMUSTINE
     Indication: Chronic lymphocytic leukaemia
     Dosage: DOSE AND FREQUENCY WERE NOT REPORTED, 6 CYCLES
     Route: 065
     Dates: start: 2022
  2. RITUXIMAB [Suspect]
     Active Substance: RITUXIMAB
     Indication: Chronic lymphocytic leukaemia
     Route: 065
     Dates: start: 2022
  3. CYCLOPHOSPHAMIDE [Concomitant]
     Active Substance: CYCLOPHOSPHAMIDE
  4. DOXORUBICIN [Concomitant]
     Active Substance: DOXORUBICIN
  5. PREDNISONE [Concomitant]
     Active Substance: PREDNISONE
  6. VINCRISTINE [Concomitant]
     Active Substance: VINCRISTINE

REACTIONS (5)
  - Eyelid tumour [Unknown]
  - Ocular neoplasm [Unknown]
  - Lymphadenopathy [Unknown]
  - Pain [Unknown]
  - Therapy partial responder [Unknown]

NARRATIVE: CASE EVENT DATE: 20230901
